FAERS Safety Report 4502620-2 (Version None)
Quarter: 2004Q4

REPORT INFORMATION
  Report Type: 
  Country: None (occurrence: None)
  Receive Date: 20041110
  Receipt Date: 20041028
  Transmission Date: 20050328
  Serious: Yes (Life-Threatening, Hospitalization, Other)
  Sender: FDA-Public Use
  Company Number: HQWYE166529OCT04

PATIENT
  Age: 74 Year
  Sex: Male

DRUGS (10)
  1. CORDARONE [Suspect]
     Indication: ARRHYTHMIA
     Dosage: 200 MG 1X PER 1 DAY, ORAL
     Route: 048
  2. ARELIX        (PIRETANIDE, ) [Suspect]
     Indication: HYPERTENSION
     Dosage: 3 MG 1X PER 1 DAY, ORAL/A FEW YEARS
     Route: 048
     Dates: end: 20040708
  3. DELMUNO         (FELODIPINE/RAMIPRIL, ) [Suspect]
     Indication: CORONARY ARTERY DISEASE
     Dosage: 5 MG 1X PER 1 DAY, ORAL/A FEW YEARS
     Route: 048
     Dates: end: 20040708
  4. BERLININSULIN H BASAL        (INSULIN HUMAN) [Concomitant]
  5. INSULIN HUMAN (INSULIN  HUMAN) [Concomitant]
  6. CORVATON - SLOW RELEASE             (MOLSIDOMINE) [Concomitant]
  7. ASPIRIN [Concomitant]
  8. GLYBURIDE [Concomitant]
  9. PRAVASTATIN SODIUM [Concomitant]
  10. TEVETEN [Concomitant]

REACTIONS (11)
  - BUNDLE BRANCH BLOCK LEFT [None]
  - C-REACTIVE PROTEIN INCREASED [None]
  - DIZZINESS [None]
  - DYSPNOEA [None]
  - HAEMATOCRIT DECREASED [None]
  - HAEMOGLOBIN DECREASED [None]
  - HYPERHIDROSIS [None]
  - HYPOTENSION [None]
  - RENAL FAILURE [None]
  - SINUS BRADYCARDIA [None]
  - WHITE BLOOD CELL COUNT INCREASED [None]
